FAERS Safety Report 5165370-8 (Version None)
Quarter: 2006Q4

REPORT INFORMATION
  Report Type: 
  Country: None (occurrence: None)
  Receive Date: 20061206
  Receipt Date: 20060907
  Transmission Date: 20070319
  Serious: Yes (Hospitalization, Other)
  Sender: FDA-Public Use
  Company Number: PHEH2006US11527

PATIENT
  Age: 53 Year
  Sex: Female

DRUGS (2)
  1. FOSAMAX [Concomitant]
  2. FEMARA [Suspect]
     Indication: BREAST CANCER STAGE II
     Dates: start: 20050301

REACTIONS (10)
  - ARTHRALGIA [None]
  - BLOOD CHOLESTEROL INCREASED [None]
  - HOT FLUSH [None]
  - LIMB OPERATION [None]
  - LYMPHOEDEMA [None]
  - MUSCULOSKELETAL STIFFNESS [None]
  - MYALGIA [None]
  - NEPHROLITHIASIS [None]
  - OSTEOPENIA [None]
  - TRIGGER FINGER [None]
